FAERS Safety Report 5419670-4 (Version None)
Quarter: 2007Q3

REPORT INFORMATION
  Report Type: 
  Country: None (occurrence: None)
  Receive Date: 20070820
  Receipt Date: 20070809
  Transmission Date: 20080115
  Serious: Yes (Other)
  Sender: FDA-Public Use
  Company Number: US-JNJFOC-20070802268

PATIENT

DRUGS (6)
  1. REMICADE [Suspect]
  2. REMICADE [Suspect]
  3. REMICADE [Suspect]
     Indication: DRUG EXPOSURE DURING PREGNANCY
  4. HUMIRA [Suspect]
     Indication: CROHN'S DISEASE
  5. ACETAMINOPHEN [Concomitant]
  6. ANTIHISTAMINES [Concomitant]

REACTIONS (1)
  - VENTRICULAR SEPTAL DEFECT [None]
